FAERS Safety Report 17744947 (Version 1)
Quarter: 2020Q2

REPORT INFORMATION
  Report Type: Spontaneous
  Country: US (occurrence: US)
  Receive Date: 20200504
  Receipt Date: 20200504
  Transmission Date: 20200714
  Serious: No
  Sender: FDA-Public Use
  Company Number: None

PATIENT
  Age: 57 Year
  Sex: Female
  Weight: 70.65 kg

DRUGS (2)
  1. RITUXAN [Suspect]
     Active Substance: RITUXIMAB
     Indication: PEMPHIGUS
     Dosage: ?          OTHER FREQUENCY:0, 2 WKS THEN Q6MO;?
     Route: 042
     Dates: start: 20200504, end: 20200504
  2. RITUXAN [Suspect]
     Active Substance: RITUXIMAB

REACTIONS (6)
  - Pruritus [None]
  - Paraesthesia oral [None]
  - Infusion related reaction [None]
  - Urticaria [None]
  - Ear pruritus [None]
  - Throat irritation [None]

NARRATIVE: CASE EVENT DATE: 20200504
